FAERS Safety Report 8998063 (Version 1)
Quarter: 2013Q1

REPORT INFORMATION
  Report Type: Spontaneous
  Country: US (occurrence: US)
  Receive Date: 20130104
  Receipt Date: 20130104
  Transmission Date: 20140127
  Serious: Yes (Hospitalization)
  Sender: FDA-Public Use
  Company Number: US-B.I. PHARMACEUTICALS,INC./RIDGEFIELD-2012-BI-04642BP

PATIENT
  Age: 51 Year
  Sex: Male
  Weight: 68 kg

DRUGS (9)
  1. SPIRIVA [Suspect]
     Indication: CHRONIC OBSTRUCTIVE PULMONARY DISEASE
     Dosage: 18 MCG
     Route: 055
     Dates: start: 2011
  2. PERCOCET [Concomitant]
     Route: 048
  3. ASPIRIN [Concomitant]
     Dosage: 81 MG
     Route: 048
  4. PROAIR [Concomitant]
     Route: 055
  5. ISOSORBIDE [Concomitant]
     Dosage: 30 MG
     Route: 048
  6. LIDODERM PATCH [Concomitant]
     Route: 061
  7. CARVEDILOL [Concomitant]
     Dosage: 3.125 MG
     Route: 048
  8. PRAVASTATIN [Concomitant]
     Indication: BLOOD CHOLESTEROL INCREASED
     Dosage: 80 MG
     Route: 048
  9. SYMBICORT [Concomitant]
     Route: 055

REACTIONS (8)
  - Loss of consciousness [Recovered/Resolved]
  - Fall [Recovered/Resolved]
  - Meniscus injury [Not Recovered/Not Resolved]
  - Renal failure [Recovered/Resolved]
  - Contusion [Recovered/Resolved]
  - Arthropathy [Not Recovered/Not Resolved]
  - Rib fracture [Not Recovered/Not Resolved]
  - Dyspnoea [Recovered/Resolved]
